FAERS Safety Report 6014323-6 (Version None)
Quarter: 2008Q4

REPORT INFORMATION
  Report Type: 
  Country: None (occurrence: None)
  Receive Date: 20081219
  Receipt Date: 20080404
  Transmission Date: 20090506
  Serious: No
  Sender: FDA-Public Use
  Company Number: A0722633A

PATIENT
  Sex: Male

DRUGS (7)
  1. AVODART [Suspect]
     Dosage: .5MG IN THE MORNING
     Route: 048
  2. SYNTHROID [Concomitant]
  3. NEXIUM [Concomitant]
  4. MELATONIN [Concomitant]
  5. CRESTOR [Concomitant]
  6. NORVASC [Concomitant]
  7. ASPIRIN [Concomitant]

REACTIONS (1)
  - DRUG INEFFECTIVE [None]
